FAERS Safety Report 5690477-6 (Version None)
Quarter: 2008Q2

REPORT INFORMATION
  Report Type: 
  Country: None (occurrence: None)
  Receive Date: 20080401
  Receipt Date: 20080327
  Transmission Date: 20081010
  Serious: Yes (Other)
  Sender: FDA-Public Use
  Company Number: US-ASTRAZENECA-2008UW06244

PATIENT
  Age: 78 Year
  Sex: Male
  Weight: 131.5 kg

DRUGS (5)
  1. CRESTOR [Suspect]
     Indication: HYPERCHOLESTEROLAEMIA
     Route: 048
  2. CHILDREN'S ASPIRIN [Concomitant]
  3. TOPROL-XL [Concomitant]
     Route: 048
  4. EYE MEDICATION [Concomitant]
     Indication: CATARACT
  5. VITAMINS [Concomitant]

REACTIONS (3)
  - ABNORMAL DREAMS [None]
  - HALLUCINATION [None]
  - PARALYSIS [None]
